FAERS Safety Report 16488885 (Version 1)
Quarter: 2019Q2

REPORT INFORMATION
  Report Type: Spontaneous
  Country: CN (occurrence: CN)
  Receive Date: 20190627
  Receipt Date: 20190627
  Transmission Date: 20190711
  Serious: Yes (Other)
  Sender: FDA-Public Use
  Company Number: CN-BAXTER-2019BAX012433

PATIENT
  Age: 9 Year
  Sex: Female

DRUGS (26)
  1. ENDOXAN [Suspect]
     Active Substance: CYCLOPHOSPHAMIDE
     Dosage: DOSAGE FORM: INJECTION, CYCLOPHOSPHAMIDE+ 0.9% SODIUM CHLORIDE, DOSE RE-INTRODUCED
     Route: 041
  2. 0.9% SODIUM CHLORIDE INJECTION [Suspect]
     Active Substance: SODIUM CHLORIDE
     Dosage: CYCLOPHOSPHAMIDE + 0.9% SODIUM CHLORIDE, DOSE RE-INTRODUCED
     Route: 041
  3. CYTARABINE HYDROCHLORIDE [Suspect]
     Active Substance: CYTARABINE HYDROCHLORIDE
     Indication: ACUTE LYMPHOCYTIC LEUKAEMIA
     Dosage: CYTARABINE FOR INJECTION 0.05 G + 5% GLUCOSE INJECTION 100 ML
     Route: 041
     Dates: start: 20190522, end: 20190529
  4. CYTOSAR [Suspect]
     Active Substance: CYTARABINE
     Dosage: CYTOSAR + DEXAMETHASONE + 0.9% SODIUM CHLORIDE, DOSE RE-INTRODUCED
     Route: 037
  5. MERCAPTOPURINE. [Suspect]
     Active Substance: MERCAPTOPURINE
     Dosage: DOSAGE FORM: TABLETS, DOSE RE-INTRODUCED
     Route: 048
  6. 0.9% SODIUM CHLORIDE INJECTION [Suspect]
     Active Substance: SODIUM CHLORIDE
     Dosage: CYCLOPHOSPHAMIDE FOR INJECTION 1 G + 0.9% SODIUM CHLORIDE INJECTION 250 ML
     Route: 041
     Dates: start: 20190522, end: 20190522
  7. 0.9% SODIUM CHLORIDE INJECTION [Suspect]
     Active Substance: SODIUM CHLORIDE
     Dosage: CYTOSAR + DEXAMETHASONE + 0.9% SODIUM CHLORIDE; DOSE RE-INTRODUCED
     Route: 037
  8. METHOTREXATE. [Suspect]
     Active Substance: METHOTREXATE
     Dosage: METHOTREXATE + DEXAMETHASONE + 0.9% SODIUM CHLORIDE, DOSE RE-INTRODUCED
     Route: 037
  9. 0.9% SODIUM CHLORIDE INJECTION [Suspect]
     Active Substance: SODIUM CHLORIDE
     Dosage: VINCRISTINE FOR INJECTION + 0.9% SODIUM CHLORIDE INJECTION, DOSE RE-INTRODUCED
     Route: 042
  10. 0.9% SODIUM CHLORIDE INJECTION [Suspect]
     Active Substance: SODIUM CHLORIDE
     Dosage: METHOTREXATE + DEXAMETHASONE + 0.9% SODIUM CHLORIDE, DOSE RE-INTRODUCED
     Route: 037
  11. VINCRISTINE SULFATE. [Suspect]
     Active Substance: VINCRISTINE SULFATE
     Dosage: VINCRISTINE FOR INJECTION + 0.9% SODIUM CHLORIDE INJECTION, DOSE RE-INTRODUCED
     Route: 042
  12. 0.9% SODIUM CHLORIDE INJECTION [Suspect]
     Active Substance: SODIUM CHLORIDE
     Dosage: METHOTREXATE 12.5 MG + DEXAMETHASONE 2.5 MG + 0.9% SODIUM CHLORIDE 3 ML
     Route: 037
     Dates: start: 20190522, end: 20190522
  13. MERCAPTOPURINE. [Suspect]
     Active Substance: MERCAPTOPURINE
     Indication: ACUTE LYMPHOCYTIC LEUKAEMIA
     Dosage: DOSAGE FORM: TABLETS, 1.2 TABLETS
     Route: 048
     Dates: start: 20190522, end: 20190529
  14. VINCRISTINE SULFATE. [Suspect]
     Active Substance: VINCRISTINE SULFATE
     Indication: ACUTE LYMPHOCYTIC LEUKAEMIA
     Dosage: VINCRISTINE FOR INJECTION 1.53 MG + 0.9% SODIUM CHLORIDE INJECTION 10 ML
     Route: 042
     Dates: start: 20190520, end: 20190520
  15. CYTOSAR [Suspect]
     Active Substance: CYTARABINE
     Indication: ACUTE LYMPHOCYTIC LEUKAEMIA
     Dosage: CYTOSAR 0.035 G + DEXAMETHASONE 2.5 MG + 0.9% SODIUM CHLORIDE 3 ML
     Route: 037
     Dates: start: 20190522, end: 20190522
  16. ENDOXAN [Suspect]
     Active Substance: CYCLOPHOSPHAMIDE
     Indication: ACUTE LYMPHOCYTIC LEUKAEMIA
     Dosage: DOSAGE FORM: INJECTION, CYCLOPHOSPHAMIDE FOR INJECTION 1 G + 0.9% SODIUM CHLORIDE INJECTION 250 ML
     Route: 041
     Dates: start: 20190522, end: 20190522
  17. 0.9% SODIUM CHLORIDE INJECTION [Suspect]
     Active Substance: SODIUM CHLORIDE
     Dosage: CYTOSAR 0.035 G + DEXAMETHASONE 2.5 MG + 0.9% SODIUM CHLORIDE 3 ML
     Route: 037
     Dates: start: 20190522, end: 20190522
  18. DEXAMETHASONE SODIUM PHOSPHATE. [Suspect]
     Active Substance: DEXAMETHASONE SODIUM PHOSPHATE
     Indication: ACUTE LYMPHOCYTIC LEUKAEMIA
     Dosage: METHOTREXATE 12.5 MG + DEXAMETHASONE 2.5 MG + 0.9% SODIUM CHLORIDE 3 ML
     Route: 037
     Dates: start: 20190522, end: 20190522
  19. METHOTREXATE. [Suspect]
     Active Substance: METHOTREXATE
     Indication: ACUTE LYMPHOCYTIC LEUKAEMIA
     Dosage: METHOTREXATE 12.5 MG + DEXAMETHASONE 2.5 MG + 0.9% SODIUM CHLORIDE 3 ML
     Route: 037
     Dates: start: 20190522, end: 20190522
  20. 5% GLUCOSE  INJECTION [Suspect]
     Active Substance: DEXTROSE
     Indication: MEDICATION DILUTION
     Dosage: CYTARABINE FOR INJECTION 0.05 G + 5% GLUCOSE INJECTION 100 ML
     Route: 041
     Dates: start: 20190522, end: 20190529
  21. DEXAMETHASONE SODIUM PHOSPHATE. [Suspect]
     Active Substance: DEXAMETHASONE SODIUM PHOSPHATE
     Dosage: CYTOSAR 0.035 G + DEXAMETHASONE 2.5 MG + 0.9% SODIUM CHLORIDE 3 ML
     Route: 037
     Dates: start: 20190522, end: 20190522
  22. DEXAMETHASONE SODIUM PHOSPHATE. [Suspect]
     Active Substance: DEXAMETHASONE SODIUM PHOSPHATE
     Dosage: METHOTREXATE+ DEXAMETHASONE + 0.9% SODIUM CHLORIDE; DOSE RE-INTRODUCED
     Route: 037
  23. DEXAMETHASONE SODIUM PHOSPHATE. [Suspect]
     Active Substance: DEXAMETHASONE SODIUM PHOSPHATE
     Dosage: CYTOSAR + DEXAMETHASONE + 0.9% SODIUM CHLORIDE, DOSE RE-INTRODUCED
     Route: 037
  24. 0.9% SODIUM CHLORIDE INJECTION [Suspect]
     Active Substance: SODIUM CHLORIDE
     Indication: MEDICATION DILUTION
     Dosage: VINCRISTINE FOR INJECTION 1.53 MG + 0.9% SODIUM CHLORIDE INJECTION 10 ML
     Route: 042
     Dates: start: 20190520, end: 20190520
  25. 5% GLUCOSE  INJECTION [Suspect]
     Active Substance: DEXTROSE
     Dosage: CYTARABINE FOR INJECTION + 5% GLUCOSE INJECTION, DOSE RE-INTRODUCED
     Route: 041
  26. CYTARABINE HYDROCHLORIDE [Suspect]
     Active Substance: CYTARABINE HYDROCHLORIDE
     Dosage: CYTARABINE FOR INJECTION + 5% GLUCOSE INJECTION, DOSE RE-INTRODUCED
     Route: 041

REACTIONS (2)
  - Bone marrow failure [Recovering/Resolving]
  - Mental disorder [Unknown]

NARRATIVE: CASE EVENT DATE: 20190529
